FAERS Safety Report 17185069 (Version 1)
Quarter: 2019Q4

REPORT INFORMATION
  Report Type: Report from Study
  Country: DE (occurrence: DE)
  Receive Date: 20191220
  Receipt Date: 20191220
  Transmission Date: 20200122
  Serious: Yes (Death)
  Sender: FDA-Public Use
  Company Number: DE-ROCHE-2503670

PATIENT
  Age: 36 Year
  Sex: Female

DRUGS (18)
  1. ATEZOLIZUMAB. [Suspect]
     Active Substance: ATEZOLIZUMAB
     Indication: TRIPLE NEGATIVE BREAST CANCER
     Dosage: DOSE OF LAST BLINDED ATEZOLIZUMAB ADMINISTERED ON 13/NOV/2019?01/AUG/2019 (CYCLE 1 DAY 1), 21/AUG/20
     Route: 042
     Dates: start: 20190801
  2. EMEND [Concomitant]
     Active Substance: APREPITANT
     Route: 065
     Dates: start: 20190808
  3. HUMAN ALBUMIN 20% BEHRING [Concomitant]
     Route: 065
     Dates: start: 20191002, end: 20191002
  4. PANTOZOLE [Concomitant]
     Active Substance: PANTOPRAZOLE SODIUM
     Route: 065
     Dates: start: 20190808
  5. HUMAN ALBUMIN 20% BEHRING [Concomitant]
     Route: 065
     Dates: start: 20190821, end: 20190821
  6. GEMCITABINE. [Suspect]
     Active Substance: GEMCITABINE
     Indication: TRIPLE NEGATIVE BREAST CANCER
     Dosage: DAYS 1 AND 8 OF EACH 3-WEEK TREATMENT CYCLE?01/AUG/2019 (CYCLE 1 DAY 1), 08/AUG/2019 (CYCLE 1 DAY 8)
     Route: 042
     Dates: start: 20190801
  7. KEVATRIL [Concomitant]
     Active Substance: GRANISETRON HYDROCHLORIDE
     Route: 065
     Dates: start: 20190801, end: 20190821
  8. KEVATRIL [Concomitant]
     Active Substance: GRANISETRON HYDROCHLORIDE
     Route: 065
     Dates: start: 20190911
  9. MCP [Concomitant]
     Active Substance: METOCLOPRAMIDE HYDROCHLORIDE
     Indication: NAUSEA
     Route: 065
     Dates: start: 20191002
  10. VOMEX A [Concomitant]
     Active Substance: DIMENHYDRINATE
     Indication: NAUSEA
     Route: 065
     Dates: start: 20191030
  11. DEKRISTOL [Concomitant]
     Active Substance: CHOLECALCIFEROL
     Route: 065
     Dates: start: 20190927
  12. CALCIUM [Concomitant]
     Active Substance: CALCIUM
     Route: 065
     Dates: start: 20190927
  13. XGEVA [Concomitant]
     Active Substance: DENOSUMAB
     Route: 065
     Dates: start: 20191002
  14. BISOPROLOL [Concomitant]
     Active Substance: BISOPROLOL
     Route: 065
     Dates: start: 20190823
  15. HUMAN ALBUMIN 20% BEHRING [Concomitant]
     Route: 065
     Dates: start: 20190918, end: 20190918
  16. FORTECORTIN [DEXAMETHASONE] [Concomitant]
     Active Substance: DEXAMETHASONE
     Route: 065
     Dates: start: 20190801, end: 20190808
  17. CARBOPLATIN. [Suspect]
     Active Substance: CARBOPLATIN
     Indication: TRIPLE NEGATIVE BREAST CANCER
     Dosage: ON DAYS 1 AND 8 OF EACH 3-WEEK TREATMENT CYCLE?01/AUG/2019 (CYCLE 1 DAY 1), 08/AUG/2019 (CYCLE 1 DAY
     Route: 042
     Dates: start: 20190801
  18. MONURIL [Concomitant]
     Active Substance: FOSFOMYCIN TROMETHAMINE
     Route: 065
     Dates: start: 20191023, end: 20191030

REACTIONS (1)
  - Death [Fatal]

NARRATIVE: CASE EVENT DATE: 20191215
